FAERS Safety Report 22079401 (Version 1)
Quarter: 2023Q1

REPORT INFORMATION
  Report Type: Spontaneous
  Country: FR (occurrence: FR)
  Receive Date: 20230309
  Receipt Date: 20230309
  Transmission Date: 20230417
  Serious: Yes (Life-Threatening, Hospitalization)
  Sender: FDA-Public Use
  Company Number: FR-AFSSAPS-GR2023000160

PATIENT
  Age: 75 Year
  Sex: Female
  Weight: 77 kg

DRUGS (4)
  1. PANTOPRAZOLE SODIUM [Suspect]
     Active Substance: PANTOPRAZOLE SODIUM
     Indication: Prophylaxis against gastrointestinal ulcer
     Dosage: 20 MILLIGRAM
     Route: 048
     Dates: start: 20221128, end: 20230107
  2. AZATHIOPRINE SODIUM [Suspect]
     Active Substance: AZATHIOPRINE SODIUM
     Indication: Antisynthetase syndrome
     Dosage: 150 MILLIGRAM
     Route: 048
     Dates: start: 20221118, end: 20230107
  3. BACTRIM [Suspect]
     Active Substance: SULFAMETHOXAZOLE\TRIMETHOPRIM
     Indication: Opportunistic infection prophylaxis
     Dosage: 3 DOSAGE FORM
     Route: 048
     Dates: start: 20221118, end: 20230107
  4. CLAIRYG [Suspect]
     Active Substance: HUMAN IMMUNOGLOBULIN G
     Indication: Antisynthetase syndrome
     Dosage: 75 GRAM
     Route: 042
     Dates: start: 20221106, end: 20221106

REACTIONS (2)
  - Agranulocytosis [Recovering/Resolving]
  - Anaemia macrocytic [Recovering/Resolving]

NARRATIVE: CASE EVENT DATE: 20230107
